FAERS Safety Report 9833042 (Version 2)
Quarter: 2014Q1

REPORT INFORMATION
  Report Type: Spontaneous
  Country: VE (occurrence: VE)
  Receive Date: 20140121
  Receipt Date: 20140124
  Transmission Date: 20141002
  Serious: Yes (Death)
  Sender: FDA-Public Use
  Company Number: VE-PFIZER INC-2014015617

PATIENT
  Age: 68 Year
  Sex: Male

DRUGS (3)
  1. LIPITOR [Suspect]
     Indication: HYPERCHOLESTEROLAEMIA
     Dosage: 40 MG, 1X/DAY
     Route: 048
     Dates: start: 2013, end: 2013
  2. LERCADIP [Concomitant]
     Indication: HYPERTENSION
     Dosage: 10 MG, 1X/DAY
     Route: 048
     Dates: start: 2012, end: 2013
  3. INSULIN [Concomitant]
     Indication: DIABETES MELLITUS
     Dosage: 18 IU, 1X/DAY
     Route: 058
     Dates: start: 2012, end: 2013

REACTIONS (1)
  - Cardiac arrest [Fatal]
